FAERS Safety Report 6965280-7 (Version None)
Quarter: 2010Q3

REPORT INFORMATION
  Report Type: 
  Country: None (occurrence: None)
  Receive Date: 20100903
  Receipt Date: 20100830
  Transmission Date: 20110219
  Serious: Yes (Hospitalization)
  Sender: FDA-Public Use
  Company Number: CHPA2010US13920

PATIENT
  Sex: Male

DRUGS (2)
  1. VOLTAREN [Suspect]
     Indication: INFLAMMATION
     Dosage: UNK, UNK
     Route: 061
  2. VOLTAREN [Suspect]
     Indication: ARTHRALGIA

REACTIONS (3)
  - DRUG ADMINISTERED AT INAPPROPRIATE SITE [None]
  - MENINGITIS [None]
  - OFF LABEL USE [None]
